FAERS Safety Report 22121485 (Version 1)
Quarter: 2023Q1

REPORT INFORMATION
  Report Type: Report from Study
  Country: US (occurrence: None)
  Receive Date: 20230321
  Receipt Date: 20230321
  Transmission Date: 20230418
  Serious: Yes (Death, Other)
  Sender: FDA-Public Use
  Company Number: US-ROCHE-3313208

PATIENT

DRUGS (1)
  1. TOCILIZUMAB [Suspect]
     Active Substance: TOCILIZUMAB
     Indication: Malignant melanoma
     Route: 042
     Dates: start: 20210624, end: 20210902

REACTIONS (3)
  - Disease progression [Unknown]
  - Tumour haemorrhage [Unknown]
  - Death [Fatal]
